FAERS Safety Report 7867066-8 (Version None)
Quarter: 2011Q4

REPORT INFORMATION
  Report Type: 
  Country: None (occurrence: None)
  Receive Date: 20111028
  Receipt Date: 20111014
  Transmission Date: 20120403
  Serious: Yes (Other)
  Sender: FDA-Public Use
  Company Number: JP-BRISTOL-MYERS SQUIBB COMPANY-16162505

PATIENT
  Age: 65 Year
  Sex: Male

DRUGS (12)
  1. PITAVASTATIN CALCIUM [Concomitant]
     Dates: start: 20100401
  2. IPILIMUMAB [Suspect]
     Indication: NON-SMALL CELL LUNG CANCER
     Dosage: NO OF COURSES: 2
     Route: 042
     Dates: start: 20110831
  3. PACLITAXEL [Suspect]
     Indication: NON-SMALL CELL LUNG CANCER
     Dosage: NO OF COURSES: 4
     Route: 042
     Dates: start: 20110720
  4. CARBOPLATIN [Suspect]
     Indication: NON-SMALL CELL LUNG CANCER
     Dosage: 1DF: 6AUC NO OF COURSES: 4
     Route: 042
     Dates: start: 20110720
  5. BROTIZOLAM [Concomitant]
     Dates: start: 20040401
  6. IBUDILAST [Concomitant]
     Dates: start: 20100401
  7. TIZANIDINE HCL [Concomitant]
     Dates: start: 20100401
  8. POSTERISAN FORTE [Concomitant]
     Dates: start: 20110910
  9. SODIUM HYALURONATE [Concomitant]
     Dates: start: 20110805
  10. ACETAMINOPHEN [Concomitant]
     Dosage: 14SEP2011-15SEP2011 20SEP2011-ONGOING
     Dates: start: 20110920
  11. ETHYL LOFLAZEPATE [Concomitant]
     Dates: start: 20110401
  12. MAGNESIUM OXIDE [Concomitant]
     Dates: start: 20110914

REACTIONS (1)
  - HYPOPARATHYROIDISM [None]
